FAERS Safety Report 7208603-6 (Version None)
Quarter: 2011Q1

REPORT INFORMATION
  Report Type: 
  Country: None (occurrence: None)
  Receive Date: 20110104
  Receipt Date: 20101220
  Transmission Date: 20110831
  Serious: Yes (Death)
  Sender: FDA-Public Use
  Company Number: US-ROCHE-509955

PATIENT
  Sex: Male
  Weight: 79.5 kg

DRUGS (7)
  1. MEGACE [Concomitant]
     Dosage: GENERIC REPORTED AS MEGESTROL ACETATE.
     Route: 048
     Dates: start: 20061009
  2. ALCOHOL [Concomitant]
  3. BEVACIZUMAB [Suspect]
     Indication: NON-SMALL CELL LUNG CANCER
     Dosage: 1002 MG, Q3W
     Route: 042
     Dates: start: 20061102, end: 20070626
  4. ERLOTINIB [Suspect]
     Indication: NON-SMALL CELL LUNG CANCER
     Dosage: 150 MG, QD
     Route: 048
     Dates: start: 20070130, end: 20070626
  5. LACTULOSE [Concomitant]
     Indication: CONSTIPATION
     Dosage: 30 ML, PRN
     Route: 048
     Dates: start: 20060821
  6. FENTANYL CITRATE [Concomitant]
     Dosage: 50/75 UG, Q3D
     Route: 062
     Dates: start: 20060821
  7. VICODIN [Concomitant]
     Indication: PAIN
     Dosage: 75 MG, PRN
     Route: 048
     Dates: start: 20060918

REACTIONS (1)
  - CARDIAC ARREST [None]
